FAERS Safety Report 6088156-9 (Version None)
Quarter: 2009Q1

REPORT INFORMATION
  Report Type: 
  Country: None (occurrence: None)
  Receive Date: 20090224
  Receipt Date: 20090217
  Transmission Date: 20090719
  Serious: Yes (Other)
  Sender: FDA-Public Use
  Company Number: PHEH2009US01798

PATIENT
  Age: 69 Year
  Sex: Female
  Weight: 100.23 kg

DRUGS (1)
  1. TEKTURNA [Suspect]
     Indication: HYPERTENSION
     Dosage: 300 MG, QD
     Dates: start: 20080619, end: 20080909

REACTIONS (3)
  - ANXIETY [None]
  - DYSPHORIA [None]
  - IRRITABILITY [None]
